FAERS Safety Report 9722005 (Version 5)
Quarter: 2014Q1

REPORT INFORMATION
  Report Type: Spontaneous
  Country: US (occurrence: US)
  Receive Date: 20131202
  Receipt Date: 20140130
  Transmission Date: 20141002
  Serious: No
  Sender: FDA-Public Use
  Company Number: US-BIOGENIDEC-2013BI069544

PATIENT
  Age: 45 Year
  Sex: Female

DRUGS (11)
  1. TECFIDERA [Suspect]
     Indication: MULTIPLE SCLEROSIS
     Route: 048
     Dates: start: 20130419
  2. TECFIDERA [Suspect]
     Indication: MULTIPLE SCLEROSIS
     Route: 048
     Dates: start: 201305
  3. TECFIDERA [Suspect]
     Indication: MULTIPLE SCLEROSIS
     Route: 048
     Dates: start: 201306
  4. ANTIVERT [Concomitant]
  5. ASPIRIN EC [Concomitant]
  6. FOLTX [Concomitant]
  7. CITRACAL+ D [Concomitant]
  8. VITAMIN B12 + FOLIC ACID [Concomitant]
  9. AMPYRA [Concomitant]
     Indication: MULTIPLE SCLEROSIS
     Route: 048
     Dates: start: 201006
  10. PAXIL [Concomitant]
     Route: 048
     Dates: start: 200912
  11. WELLBUTRIN [Concomitant]
     Route: 048
     Dates: start: 200912

REACTIONS (3)
  - Muscular weakness [Unknown]
  - Chest discomfort [Recovered/Resolved]
  - Flushing [Recovered/Resolved]
